FAERS Safety Report 19257189 (Version 2)
Quarter: 2021Q2

REPORT INFORMATION
  Report Type: Spontaneous
  Country: FR (occurrence: FR)
  Receive Date: 20210513
  Receipt Date: 20210525
  Transmission Date: 20210717
  Serious: Yes (Other)
  Sender: FDA-Public Use
  Company Number: FR-ORGANON-O2105FRA000683

PATIENT
  Age: 81 Year
  Sex: Male
  Weight: 70 kg

DRUGS (8)
  1. XARELTO [Suspect]
     Active Substance: RIVAROXABAN
     Indication: VENOUS THROMBOSIS
  2. VERAPAMIL TEVA [Suspect]
     Active Substance: VERAPAMIL HYDROCHLORIDE
     Indication: CARDIAC DISORDER
  3. VERAPAMIL TEVA [Suspect]
     Active Substance: VERAPAMIL HYDROCHLORIDE
     Indication: CARDIAC DISORDER
     Dosage: 40 MILLIGRAM, COATED TABLET
     Route: 048
     Dates: start: 20201030, end: 20210415
  4. XARELTO [Suspect]
     Active Substance: RIVAROXABAN
     Indication: PULMONARY EMBOLISM
     Dosage: 20 MILLIGRAM
     Route: 048
     Dates: start: 20201221
  5. XARELTO [Suspect]
     Active Substance: RIVAROXABAN
     Indication: PRODUCT USED FOR UNKNOWN INDICATION
  6. LERCANIDIPINE [Concomitant]
     Active Substance: LERCANIDIPINE
     Dosage: 10 MILLIGRAM
     Route: 048
     Dates: start: 20210311
  7. KARDEGIC [Concomitant]
     Active Substance: ASPIRIN DL-LYSINE
     Dosage: UNK
     Route: 065
  8. SIMVASTATIN. [Suspect]
     Active Substance: SIMVASTATIN
     Indication: PRODUCT USED FOR UNKNOWN INDICATION
     Dosage: 10 MILLIGRAM
     Route: 048
     Dates: start: 20210205, end: 20210310

REACTIONS (11)
  - Arthralgia [Unknown]
  - Blood creatine increased [Unknown]
  - Diabetes mellitus [Unknown]
  - Phlebitis [Recovered/Resolved]
  - Blood cholesterol abnormal [Unknown]
  - Gait disturbance [Unknown]
  - Pain in extremity [Recovered/Resolved]
  - Impaired driving ability [Unknown]
  - Walking aid user [Unknown]
  - Pulmonary embolism [Recovered/Resolved]
  - Blood cholesterol increased [Unknown]

NARRATIVE: CASE EVENT DATE: 20201101
